FAERS Safety Report 14326533 (Version 8)
Quarter: 2019Q3

REPORT INFORMATION
  Report Type: Report from Study
  Country: CA (occurrence: CA)
  Receive Date: 20171227
  Receipt Date: 20190717
  Transmission Date: 20191004
  Serious: Yes (Hospitalization, Other)
  Sender: FDA-Public Use
  Company Number: CA-ROCHE-2042128

PATIENT
  Age: 47 Year
  Sex: Male

DRUGS (6)
  1. OCREVUS [Suspect]
     Active Substance: OCRELIZUMAB
     Indication: RELAPSING-REMITTING MULTIPLE SCLEROSIS
     Dosage: LOADING DOSE 300MG DAY 0 AND DAY 14 AFTER Q6MONTHS ;ONGOING: YES (IN 250 ML NORMAL SALINE)
     Route: 042
     Dates: start: 20171201
  2. RAMIPRIL. [Concomitant]
     Active Substance: RAMIPRIL
     Route: 065
  3. CEFPROZIL. [Suspect]
     Active Substance: CEFPROZIL
     Indication: BRONCHITIS
     Dosage: 1 TABLET
     Route: 048
     Dates: start: 20171206
  4. DOXYCYCLINE. [Suspect]
     Active Substance: DOXYCYCLINE
     Indication: BRONCHITIS
     Dosage: 1 TABLET
     Route: 048
     Dates: start: 20171206
  5. NORMAL SALINE [Concomitant]
     Active Substance: SODIUM CHLORIDE
     Route: 042
     Dates: start: 20171201
  6. BENADRYL [Suspect]
     Active Substance: DIPHENHYDRAMINE HYDROCHLORIDE
     Indication: PREMEDICATION
     Route: 065

REACTIONS (16)
  - Influenza [Recovered/Resolved]
  - Dry throat [Recovered/Resolved]
  - Memory impairment [Recovered/Resolved]
  - Drug hypersensitivity [Unknown]
  - Fatigue [Recovered/Resolved]
  - Cough [Recovered/Resolved]
  - Heart rate increased [Not Recovered/Not Resolved]
  - Nasopharyngitis [Recovered/Resolved]
  - Mood swings [Unknown]
  - Oropharyngeal pain [Recovering/Resolving]
  - White blood cell count decreased [Not Recovered/Not Resolved]
  - Product administration error [Unknown]
  - Mobility decreased [Recovered/Resolved]
  - Nuclear magnetic resonance imaging abnormal [Unknown]
  - Tooth disorder [Not Recovered/Not Resolved]
  - Musculoskeletal stiffness [Unknown]

NARRATIVE: CASE EVENT DATE: 201712
